FAERS Safety Report 9344723 (Version 1)
Quarter: 2013Q2

REPORT INFORMATION
  Report Type: Spontaneous
  Country: IT (occurrence: IT)
  Receive Date: 20130612
  Receipt Date: 20130612
  Transmission Date: 20140414
  Serious: Yes (Other)
  Sender: FDA-Public Use
  Company Number: IT-PFIZER INC-2013173222

PATIENT
  Age: 70 Year
  Sex: Male

DRUGS (1)
  1. TYGACIL [Suspect]
     Indication: CHOLANGITIS
     Dosage: 100 MG, DAILY
     Route: 042
     Dates: start: 20130408, end: 20130417

REACTIONS (3)
  - Hyperpyrexia [Recovered/Resolved]
  - Musculoskeletal pain [Recovered/Resolved]
  - Rash [Recovered/Resolved]
